FAERS Safety Report 7919812-2 (Version None)
Quarter: 2011Q4

REPORT INFORMATION
  Report Type: 
  Country: None (occurrence: None)
  Receive Date: 20111117
  Receipt Date: 20111117
  Transmission Date: 20120403
  Serious: Yes (Other)
  Sender: FDA-Public Use
  Company Number: None

PATIENT
  Age: 48 Year
  Sex: Female
  Weight: 81.646 kg

DRUGS (2)
  1. VILAZODONE [Suspect]
     Indication: MAJOR DEPRESSION
     Dosage: 10MG
     Route: 048
     Dates: start: 20111025, end: 20111027
  2. VILAZODONE [Suspect]
     Indication: DISEASE RECURRENCE
     Dosage: 10MG
     Route: 048
     Dates: start: 20111025, end: 20111027

REACTIONS (3)
  - LIP SWELLING [None]
  - PRURITUS [None]
  - EYE SWELLING [None]
